FAERS Safety Report 14011450 (Version 6)
Quarter: 2017Q4

REPORT INFORMATION
  Report Type: Report from Study
  Country: CO (occurrence: CO)
  Receive Date: 20170926
  Receipt Date: 20171218
  Transmission Date: 20180321
  Serious: Yes (Other)
  Sender: FDA-Public Use
  Company Number: PHHY2017CO078497

PATIENT
  Age: 54 Year
  Sex: Male
  Weight: 65 kg

DRUGS (4)
  1. LOPERAMIDE [Concomitant]
     Active Substance: LOPERAMIDE
     Indication: PRODUCT USED FOR UNKNOWN INDICATION
     Dosage: UNK
     Route: 065
  2. HYDROCHLOROTHIAZIDE. [Concomitant]
     Active Substance: HYDROCHLOROTHIAZIDE
     Indication: PRODUCT USED FOR UNKNOWN INDICATION
     Dosage: UNK
     Route: 065
  3. LOSARTAN. [Suspect]
     Active Substance: LOSARTAN
     Indication: BLOOD PRESSURE MEASUREMENT
     Dosage: UNK
     Route: 065
  4. VOTRIENT [Suspect]
     Active Substance: PAZOPANIB HYDROCHLORIDE
     Indication: RENAL CELL CARCINOMA
     Dosage: 400 MG, BID
     Route: 048
     Dates: start: 20140801

REACTIONS (10)
  - Teething [Unknown]
  - Oral mucosal exfoliation [Unknown]
  - Diarrhoea [Not Recovered/Not Resolved]
  - Dyspnoea [Unknown]
  - Gait disturbance [Unknown]
  - Cough [Unknown]
  - Blister [Unknown]
  - Pulmonary mass [Unknown]
  - Lung disorder [Unknown]
  - Malaise [Unknown]

NARRATIVE: CASE EVENT DATE: 20140801
